FAERS Safety Report 4322079-8 (Version None)
Quarter: 2004Q1

REPORT INFORMATION
  Report Type: 
  Country: None (occurrence: None)
  Receive Date: 20040323
  Receipt Date: 20031111
  Transmission Date: 20041129
  Serious: Yes (Death)
  Sender: FDA-Public Use
  Company Number: US-GLAXOSMITHKLINE-A0439718A

PATIENT
  Age: 22 Year
  Sex: Male

DRUGS (9)
  1. AVANDIA [Suspect]
     Indication: DIABETES MELLITUS NON-INSULIN-DEPENDENT
     Route: 048
  2. GLUCOTROL XL [Concomitant]
     Dosage: 5MG PER DAY
     Route: 048
  3. METFORMIN HCL [Concomitant]
     Dosage: 850MG PER DAY
     Route: 048
  4. REMERON [Concomitant]
     Route: 048
  5. OXCARBAZEPINE [Concomitant]
     Dosage: 600MG THREE TIMES PER DAY
     Route: 048
  6. SEROQUEL [Concomitant]
     Route: 048
  7. GEODON [Concomitant]
     Dosage: 60MG TWICE PER DAY
  8. GLUCOVANCE [Concomitant]
     Dosage: 500MG TWICE PER DAY
  9. TRILEPTAL [Concomitant]
     Dosage: 300MG TWICE PER DAY

REACTIONS (8)
  - ADVERSE DRUG REACTION [None]
  - CARDIAC ARREST [None]
  - COMA [None]
  - HEPATIC FAILURE [None]
  - HEPATIC NECROSIS [None]
  - MANIA [None]
  - SUICIDAL IDEATION [None]
  - TREATMENT NONCOMPLIANCE [None]
